FAERS Safety Report 5176804-7 (Version None)
Quarter: 2006Q4

REPORT INFORMATION
  Report Type: 
  Country: None (occurrence: None)
  Receive Date: 20061218
  Receipt Date: 20061206
  Transmission Date: 20070319
  Serious: Yes (Other)
  Sender: FDA-Public Use
  Company Number: PHNU2006DE04086

PATIENT
  Age: 50 Year
  Sex: Male
  Weight: 70 kg

DRUGS (1)
  1. IMMUNOSPORIN [Suspect]
     Indication: DERMATITIS ATOPIC
     Dosage: 200 MG DAILY
     Route: 048

REACTIONS (2)
  - ANGIOTENSIN CONVERTING ENZYME INCREASED [None]
  - SARCOIDOSIS [None]
